FAERS Safety Report 8301292-9 (Version None)
Quarter: 2012Q2

REPORT INFORMATION
  Report Type: 
  Country: None (occurrence: None)
  Receive Date: 20120420
  Receipt Date: 20120413
  Transmission Date: 20120825
  Serious: Yes (Hospitalization)
  Sender: FDA-Public Use
  Company Number: US-ELI_LILLY_AND_COMPANY-US201203008528

PATIENT
  Sex: Female

DRUGS (1)
  1. FORTEO [Suspect]
     Indication: OSTEOPOROSIS
     Dosage: 20 UG, QD
     Route: 065
     Dates: start: 20120301, end: 20120301

REACTIONS (14)
  - MOUTH HAEMORRHAGE [None]
  - HEADACHE [None]
  - FEELING ABNORMAL [None]
  - DIZZINESS [None]
  - GINGIVAL PAIN [None]
  - EPISTAXIS [None]
  - WHEEZING [None]
  - MALAISE [None]
  - INJECTION SITE PAIN [None]
  - INJECTION SITE HAEMORRHAGE [None]
  - ORAL PAIN [None]
  - DRUG INTERACTION [None]
  - STOMATITIS [None]
  - FEEDING DISORDER [None]
